FAERS Safety Report 7639989-6 (Version None)
Quarter: 2011Q3

REPORT INFORMATION
  Report Type: 
  Country: None (occurrence: None)
  Receive Date: 20110727
  Receipt Date: 20110722
  Transmission Date: 20111222
  Serious: Yes (Death, Other)
  Sender: FDA-Public Use
  Company Number: US-US-EMD SERONO, INC.-7065763

PATIENT
  Sex: Female
  Weight: 91 kg

DRUGS (4)
  1. PROVIGIL [Concomitant]
  2. REBIF [Suspect]
     Indication: PRODUCT USED FOR UNKNOWN INDICATION
     Route: 058
  3. PRILOSEC [Concomitant]
  4. SANDOSTATIN [Concomitant]

REACTIONS (3)
  - HEPATIC NEOPLASM MALIGNANT [None]
  - DEATH [None]
  - PANCREATIC CARCINOMA [None]
